FAERS Safety Report 4420105-9 (Version None)
Quarter: 2004Q3

REPORT INFORMATION
  Report Type: 
  Country: None (occurrence: None)
  Receive Date: 20040804
  Receipt Date: 20040713
  Transmission Date: 20050211
  Serious: Yes (Hospitalization)
  Sender: FDA-Public Use
  Company Number: JP_040603480

PATIENT
  Age: 71 Year
  Sex: Female

DRUGS (4)
  1. VANCOMYCIN [Suspect]
     Indication: MENINGITIS STAPHYLOCOCCAL
     Dosage: 3000 MG DAY
     Dates: start: 20040604, end: 20040616
  2. LIVACT [Concomitant]
  3. ENALAPRIL MALEATE [Concomitant]
  4. URSO [Concomitant]

REACTIONS (3)
  - CSF TEST ABNORMAL [None]
  - DISSEMINATED INTRAVASCULAR COAGULATION [None]
  - PANCYTOPENIA [None]
